FAERS Safety Report 12597386 (Version 1)
Quarter: 2016Q3

REPORT INFORMATION
  Report Type: Spontaneous
  Country: RU (occurrence: RU)
  Receive Date: 20160726
  Receipt Date: 20160726
  Transmission Date: 20161109
  Serious: Yes (Other)
  Sender: FDA-Public Use
  Company Number: RU-BAYER-2016-143005

PATIENT
  Age: 47 Year
  Sex: Female

DRUGS (1)
  1. YAZ [Suspect]
     Active Substance: DROSPIRENONE\ETHINYL ESTRADIOL
     Route: 048

REACTIONS (3)
  - Vaginal haemorrhage [None]
  - Endometrial dysplasia [None]
  - Nipple pain [None]

NARRATIVE: CASE EVENT DATE: 20160630
